FAERS Safety Report 5529118-7 (Version None)
Quarter: 2007Q4

REPORT INFORMATION
  Report Type: 
  Country: None (occurrence: None)
  Receive Date: 20071129
  Receipt Date: 20070205
  Transmission Date: 20080405
  Serious: No
  Sender: FDA-Public Use
  Company Number: A0634781A

PATIENT
  Age: 44 Year
  Sex: Female
  Weight: 68.2 kg

DRUGS (1)
  1. BUPROPION HCL [Suspect]
     Indication: DEPRESSION
     Dosage: 300MG PER DAY
     Route: 048
     Dates: start: 20061127, end: 20061219

REACTIONS (6)
  - ABDOMINAL DISCOMFORT [None]
  - DYSGEUSIA [None]
  - HEADACHE [None]
  - PHARMACEUTICAL PRODUCT COMPLAINT [None]
  - STOMACH DISCOMFORT [None]
  - VOMITING [None]
